FAERS Safety Report 19791018 (Version 1)
Quarter: 2021Q3

REPORT INFORMATION
  Report Type: Spontaneous
  Country: JP (occurrence: JP)
  Receive Date: 20210906
  Receipt Date: 20210906
  Transmission Date: 20211014
  Serious: Yes (Hospitalization, Other)
  Sender: FDA-Public Use
  Company Number: JP-009507513-2108JPN000940J

PATIENT
  Age: 8 Decade
  Sex: Male

DRUGS (3)
  1. CARBOPLATIN. [Suspect]
     Active Substance: CARBOPLATIN
     Dosage: UNK
     Route: 041
     Dates: start: 20201025, end: 2021
  2. KEYTRUDA [Suspect]
     Active Substance: PEMBROLIZUMAB
     Indication: SQUAMOUS CELL CARCINOMA OF LUNG
     Dosage: 200 MILLIGRAM, Q3W
     Route: 041
     Dates: start: 20201025, end: 20210719
  3. PACLITAXEL ALBUMIN [Suspect]
     Active Substance: PACLITAXEL
     Dosage: UNK
     Route: 041
     Dates: start: 20201025, end: 2021

REACTIONS (1)
  - Cystitis [Recovering/Resolving]

NARRATIVE: CASE EVENT DATE: 202105
